FAERS Safety Report 24727415 (Version 2)
Quarter: 2025Q1

REPORT INFORMATION
  Report Type: Spontaneous
  Country: US (occurrence: US)
  Receive Date: 20241212
  Receipt Date: 20250307
  Transmission Date: 20250409
  Serious: No
  Sender: ITALFARMACO SPA
  Company Number: US-ITALFARMACO SPA-2166994

PATIENT
  Age: 22 Year
  Sex: Male
  Weight: 56.7 kg

DRUGS (1)
  1. DUVYZAT [Suspect]
     Active Substance: GIVINOSTAT
     Indication: Duchenne muscular dystrophy
     Dates: start: 20241016

REACTIONS (3)
  - Platelet count decreased [Not Recovered/Not Resolved]
  - Blood urine present [Unknown]
  - Chromaturia [Unknown]
